FAERS Safety Report 16556956 (Version 1)
Quarter: 2019Q3

REPORT INFORMATION
  Report Type: Report from Study
  Country: AU (occurrence: AU)
  Receive Date: 20190711
  Receipt Date: 20190711
  Transmission Date: 20191004
  Serious: Yes (Death, Other)
  Sender: FDA-Public Use
  Company Number: AU-ROCHE-2349643

PATIENT

DRUGS (8)
  1. HEPARIN [Suspect]
     Active Substance: HEPARIN SODIUM
     Dosage: 1,000 UNITS/HR FOR AN ADDITIONAL 24 HOURS
     Route: 042
  2. HEPARIN [Suspect]
     Active Substance: HEPARIN SODIUM
     Route: 042
  3. ASPIRIN [ACETYLSALICYLIC ACID] [Suspect]
     Active Substance: ASPIRIN
     Indication: ACUTE MYOCARDIAL INFARCTION
     Route: 048
  4. DIPYRIDAMOLE. [Suspect]
     Active Substance: DIPYRIDAMOLE
     Indication: ACUTE MYOCARDIAL INFARCTION
     Route: 050
  5. ALTEPLASE. [Suspect]
     Active Substance: ALTEPLASE
     Dosage: 20 MG/HR
     Route: 042
  6. HEPARIN [Suspect]
     Active Substance: HEPARIN SODIUM
     Indication: ACUTE MYOCARDIAL INFARCTION
     Dosage: 5000 UNITS
     Route: 042
  7. ALTEPLASE. [Suspect]
     Active Substance: ALTEPLASE
     Indication: ACUTE MYOCARDIAL INFARCTION
     Route: 040
  8. ALTEPLASE. [Suspect]
     Active Substance: ALTEPLASE
     Route: 042

REACTIONS (15)
  - Pericarditis [Unknown]
  - Phlebitis [Unknown]
  - Death [Fatal]
  - Haemorrhage [Unknown]
  - Left ventricular failure [Unknown]
  - Urogenital haemorrhage [Unknown]
  - Angina pectoris [Unknown]
  - Cerebrovascular accident [Fatal]
  - Transient ischaemic attack [Unknown]
  - Ventricular tachycardia [Unknown]
  - Gastrointestinal haemorrhage [Unknown]
  - Atrioventricular block complete [Unknown]
  - Myocardial infarction [Unknown]
  - Ventricular fibrillation [Unknown]
  - Cardiogenic shock [Unknown]
